FAERS Safety Report 5976408-X (Version None)
Quarter: 2008Q4

REPORT INFORMATION
  Report Type: 
  Country: None (occurrence: None)
  Receive Date: 20081202
  Receipt Date: 20081120
  Transmission Date: 20090506
  Serious: Yes (Hospitalization)
  Sender: FDA-Public Use
  Company Number: JP-ELI_LILLY_AND_COMPANY-JP200811001761

PATIENT
  Sex: Female
  Weight: 100 kg

DRUGS (8)
  1. ZYPREXA [Suspect]
     Indication: SCHIZOPHRENIA
     Dosage: 20 MG, EACH EVENING
     Route: 048
  2. PAXIL [Concomitant]
     Dosage: 30 MG, EACH EVENING
     Route: 048
  3. MERISLON [Concomitant]
     Dosage: 6 MG, 3/D
     Route: 048
     Dates: end: 20081024
  4. VONTROL [Concomitant]
     Dosage: 25 MG, 3/D
     Route: 048
     Dates: end: 20081024
  5. SOLANAX [Concomitant]
     Dosage: 0.4 MG, AS NEEDED
     Route: 048
  6. MICARDIS [Concomitant]
     Dosage: 40 MG, EACH MORNING
     Route: 048
  7. HI-Z [Concomitant]
     Dosage: 50 MG, 3/D
     Route: 048
  8. LIPITOR [Concomitant]
     Dosage: 10 MG, EACH EVENING
     Route: 048

REACTIONS (1)
  - NEUROGENIC BLADDER [None]
